FAERS Safety Report 24315002 (Version 2)
Quarter: 2024Q3

REPORT INFORMATION
  Report Type: Spontaneous
  Country: RO (occurrence: RO)
  Receive Date: 20240913
  Receipt Date: 20240921
  Transmission Date: 20241017
  Serious: Yes (Other)
  Sender: ACCORD
  Company Number: RO-Accord-445257

PATIENT
  Age: 51 Year
  Sex: Male

DRUGS (18)
  1. CISPLATIN [Suspect]
     Active Substance: CISPLATIN
     Indication: Small cell lung cancer extensive stage
     Dosage: SEVEN CYCLE
     Dates: start: 202401, end: 202405
  2. ETOPOSIDE [Suspect]
     Active Substance: ETOPOSIDE
     Indication: Small cell lung cancer metastatic
     Dosage: THIRD CYCLE
     Dates: start: 202401, end: 202405
  3. PEGFILGRASTIM [Concomitant]
     Active Substance: PEGFILGRASTIM
     Indication: Prophylaxis
     Dosage: 24 H FROM CHEMOTHERAPY
     Route: 058
     Dates: start: 2024
  4. CISPLATIN [Suspect]
     Active Substance: CISPLATIN
     Indication: Metastases to liver
     Dosage: SEVEN CYCLE
     Dates: start: 202401, end: 202405
  5. CISPLATIN [Suspect]
     Active Substance: CISPLATIN
     Indication: Metastases to bone
     Dosage: SEVEN CYCLE
     Dates: start: 202401, end: 202405
  6. CISPLATIN [Suspect]
     Active Substance: CISPLATIN
     Indication: Small cell lung cancer
     Dosage: SEVEN CYCLE
     Dates: start: 202401, end: 202405
  7. CISPLATIN [Suspect]
     Active Substance: CISPLATIN
     Indication: Metastases to central nervous system
     Dosage: SEVEN CYCLE
     Dates: start: 202401, end: 202405
  8. CISPLATIN [Suspect]
     Active Substance: CISPLATIN
     Indication: Metastases to muscle
     Dosage: SEVEN CYCLE
     Dates: start: 202401, end: 202405
  9. CISPLATIN [Suspect]
     Active Substance: CISPLATIN
     Indication: Small cell lung cancer metastatic
     Dosage: SEVEN CYCLE
     Dates: start: 202401, end: 202405
  10. CISPLATIN [Suspect]
     Active Substance: CISPLATIN
     Indication: Metastases to lung
     Dosage: SEVEN CYCLE
     Dates: start: 202401, end: 202405
  11. CISPLATIN [Suspect]
     Active Substance: CISPLATIN
     Indication: Metastases to pancreas
     Dosage: SEVEN CYCLE
     Dates: start: 202401, end: 202405
  12. ETOPOSIDE [Suspect]
     Active Substance: ETOPOSIDE
     Indication: Metastases to pancreas
     Dosage: THIRD CYCLE
     Dates: start: 202401, end: 202405
  13. ETOPOSIDE [Suspect]
     Active Substance: ETOPOSIDE
     Indication: Small cell lung cancer
     Dosage: THIRD CYCLE
     Dates: start: 202401, end: 202405
  14. ETOPOSIDE [Suspect]
     Active Substance: ETOPOSIDE
     Indication: Metastases to muscle
     Dosage: THIRD CYCLE
     Dates: start: 202401, end: 202405
  15. ETOPOSIDE [Suspect]
     Active Substance: ETOPOSIDE
     Indication: Metastases to muscle
     Dosage: THIRD CYCLE
     Dates: start: 202401, end: 202405
  16. ETOPOSIDE [Suspect]
     Active Substance: ETOPOSIDE
     Indication: Metastases to liver
     Dosage: THIRD CYCLE
     Dates: start: 202401, end: 202405
  17. ETOPOSIDE [Suspect]
     Active Substance: ETOPOSIDE
     Indication: Metastases to central nervous system
     Dosage: THIRD CYCLE
     Dates: start: 202401, end: 202405
  18. ETOPOSIDE [Suspect]
     Active Substance: ETOPOSIDE
     Indication: Metastases to lung
     Dosage: THIRD CYCLE
     Dates: start: 202401, end: 202405

REACTIONS (1)
  - Anaemia [Recovering/Resolving]

NARRATIVE: CASE EVENT DATE: 20240201
